FAERS Safety Report 17808335 (Version 1)
Quarter: 2020Q2

REPORT INFORMATION
  Report Type: Spontaneous
  Country: GR (occurrence: GR)
  Receive Date: 20200520
  Receipt Date: 20200520
  Transmission Date: 20200714
  Serious: Yes (Hospitalization, Other)
  Sender: FDA-Public Use
  Company Number: GR-ACCORD-182441

PATIENT
  Age: 43 Year
  Sex: Male

DRUGS (11)
  1. IMMUNOGLOBULIN [Concomitant]
     Dosage: STRENGTH: 20 MG
  2. AMPHOTERICIN B/AMPHOTERICIN B/LIPOSOME [Concomitant]
     Active Substance: AMPHOTERICIN B
  3. FILGRASTIM [Concomitant]
     Active Substance: FILGRASTIM
  4. APIXABAN [Concomitant]
     Active Substance: APIXABAN
  5. BISOPROLOL [Concomitant]
     Active Substance: BISOPROLOL
  6. METHYLPREDNISOLONE. [Suspect]
     Active Substance: METHYLPREDNISOLONE
     Indication: IGA NEPHROPATHY
  7. MYCOPHENOLATE MOFETIL/MYCOPHENOLATE SODIUM/MYCOPHENOLIC ACID [Suspect]
     Active Substance: MYCOPHENOLIC ACID
     Indication: PRODUCT USED FOR UNKNOWN INDICATION
  8. TEICOPLANIN [Concomitant]
     Active Substance: TEICOPLANIN
  9. MEROPENEM. [Concomitant]
     Active Substance: MEROPENEM
  10. DEXAMETHASONE. [Suspect]
     Active Substance: DEXAMETHASONE
     Indication: HAEMOPHAGOCYTIC LYMPHOHISTIOCYTOSIS
  11. CEFTRIAXONE. [Concomitant]
     Active Substance: CEFTRIAXONE

REACTIONS (6)
  - Haemophagocytic lymphohistiocytosis [Recovered/Resolved]
  - Leishmaniasis [Recovered/Resolved]
  - Listeriosis [Recovered/Resolved]
  - Secondary immunodeficiency [Unknown]
  - Cytomegalovirus infection [Recovered/Resolved]
  - Encephalitis brain stem [Recovered/Resolved]
